FAERS Safety Report 19371613 (Version 1)
Quarter: 2021Q2

REPORT INFORMATION
  Report Type: Spontaneous
  Country: US (occurrence: US)
  Receive Date: 20210603
  Receipt Date: 20210603
  Transmission Date: 20210717
  Serious: No
  Sender: FDA-Public Use
  Company Number: US-SA-2021SA182504

PATIENT
  Sex: Female

DRUGS (2)
  1. SINGULAIR [Concomitant]
     Active Substance: MONTELUKAST SODIUM
     Dosage: UNK
     Route: 065
  2. XYZAL ALLERGY 24HR [Suspect]
     Active Substance: LEVOCETIRIZINE DIHYDROCHLORIDE
     Dosage: UNK UNK, HS
     Route: 065

REACTIONS (1)
  - Fatigue [Unknown]
